FAERS Safety Report 5836240-4 (Version None)
Quarter: 2008Q3

REPORT INFORMATION
  Report Type: 
  Country: None (occurrence: None)
  Receive Date: 20080806
  Receipt Date: 20080806
  Transmission Date: 20090109
  Serious: Yes (Hospitalization)
  Sender: FDA-Public Use
  Company Number: None

PATIENT
  Age: 74 Year
  Sex: Female

DRUGS (1)
  1. VANCOMYCIN HCL [Suspect]
     Indication: OSTEOMYELITIS
     Dosage: 1000MG Q72 IV
     Route: 042
     Dates: start: 20080703, end: 20080723

REACTIONS (2)
  - SKIN BURNING SENSATION [None]
  - URTICARIA [None]
